FAERS Safety Report 10187010 (Version 2)
Quarter: 2014Q2

REPORT INFORMATION
  Report Type: Report from Study
  Country: AU (occurrence: AU)
  Receive Date: 20140522
  Receipt Date: 20140522
  Transmission Date: 20141212
  Serious: Yes (Death, Other)
  Sender: FDA-Public Use
  Company Number: AU-ROCHE-1377212

PATIENT
  Age: 87 Year
  Sex: Male
  Weight: 66.3 kg

DRUGS (2)
  1. RANIBIZUMAB [Suspect]
     Indication: PRODUCT USED FOR UNKNOWN INDICATION
     Route: 050
     Dates: start: 20071101
  2. RANIBIZUMAB [Suspect]
     Route: 050
     Dates: start: 20120918, end: 20120918

REACTIONS (2)
  - Pulmonary oedema [Fatal]
  - Cerebrovascular accident [Unknown]
